FAERS Safety Report 21271372 (Version 1)
Quarter: 2022Q3

REPORT INFORMATION
  Report Type: Spontaneous
  Country: VE (occurrence: VE)
  Receive Date: 20220830
  Receipt Date: 20220830
  Transmission Date: 20221026
  Serious: Yes (Other)
  Sender: FDA-Public Use
  Company Number: VE-NOVARTISPH-NVSC2020VE324678

PATIENT
  Sex: Male

DRUGS (1)
  1. GLIVEC [Suspect]
     Active Substance: IMATINIB MESYLATE
     Indication: Chronic myeloid leukaemia
     Dosage: 400 MG (4 OF 100 MG)
     Route: 065

REACTIONS (6)
  - Nephrolithiasis [Unknown]
  - Renal pain [Unknown]
  - Abdominal pain [Unknown]
  - Gastritis [Unknown]
  - Dyspepsia [Unknown]
  - Abdominal distension [Unknown]
